FAERS Safety Report 9278867 (Version 1)
Quarter: 2013Q2

REPORT INFORMATION
  Report Type: Spontaneous
  Country: BR (occurrence: BR)
  Receive Date: 20130508
  Receipt Date: 20130508
  Transmission Date: 20140414
  Serious: Yes (Other)
  Sender: FDA-Public Use
  Company Number: PHHY2013BR044106

PATIENT
  Age: 75 Year
  Sex: Male
  Weight: 90 kg

DRUGS (7)
  1. APRESOLIN [Suspect]
     Dosage: 3 DF (25 MG), TID
     Route: 048
  2. OMEPRAZOLE [Suspect]
     Dosage: 1 DF (20MG), QD
     Route: 048
  3. CARVEDILOL [Suspect]
     Dosage: 1 DF (25MG), BID
     Route: 048
  4. ISOSORBIDE [Suspect]
     Dosage: 1 DF (40MG), TID
     Route: 048
  5. WARFARIN [Suspect]
     Dosage: 0.25 MG, ONCE PER DAY ON FRIDAY, SATURDAY AND SUNDAY
     Route: 048
  6. WARFARIN [Suspect]
     Dosage: 0.5 DF, ONCE PER DAY ON MONDAY, TUESDAY, WEDNESDAY AND ON THURSDAY
     Route: 048
  7. DILTIAZEM [Suspect]
     Dosage: 1 DF (30MG), TID
     Route: 048

REACTIONS (1)
  - Renal disorder [Unknown]
